FAERS Safety Report 9654410 (Version 4)
Quarter: 2014Q2

REPORT INFORMATION
  Report Type: Spontaneous
  Country: CN (occurrence: CN)
  Receive Date: 20131029
  Receipt Date: 20140515
  Transmission Date: 20141212
  Serious: Yes (Hospitalization, Other)
  Sender: FDA-Public Use
  Company Number: PHHY2013CN121052

PATIENT
  Age: 80 Year
  Sex: Male

DRUGS (7)
  1. DIOVAN [Suspect]
     Indication: HYPERTENSION
     Dosage: 1 DF, QD (80 MG 1 CAPSULE EVERY MORNING)
     Route: 048
     Dates: end: 20131024
  2. VOTALIN [Suspect]
     Indication: PAIN
     Dosage: 1 DF (75 MG),
     Route: 048
     Dates: end: 20131024
  3. VOTALIN [Suspect]
     Indication: BACK PAIN
  4. VOTALIN [Concomitant]
     Indication: PAIN
     Route: 061
  5. ASPIRIN [Concomitant]
  6. PLAVIX [Concomitant]
  7. VOTALIN//DICLOFENAC DIETHYLAMINE [Concomitant]
     Indication: BACK PAIN
     Route: 061
     Dates: end: 20131024

REACTIONS (2)
  - Myocardial infarction [Recovering/Resolving]
  - Asthma [Recovering/Resolving]
